FAERS Safety Report 15073858 (Version 5)
Quarter: 2018Q4

REPORT INFORMATION
  Report Type: Report from Study
  Country: KR (occurrence: KR)
  Receive Date: 20180627
  Receipt Date: 20181129
  Transmission Date: 20190204
  Serious: Yes (Hospitalization)
  Sender: FDA-Public Use
  Company Number: KR-EISAI MEDICAL RESEARCH-EC-2018-041734

PATIENT
  Age: 72 Year
  Sex: Female
  Weight: 50 kg

DRUGS (15)
  1. ROVELITO [Concomitant]
  2. CODEINE [Concomitant]
     Active Substance: CODEINE
  3. LENVATINIB [Suspect]
     Active Substance: LENVATINIB
     Indication: PAPILLARY THYROID CANCER
     Dosage: BLINDED DOSE
     Route: 048
     Dates: start: 20180531, end: 20180622
  4. NESINA [Concomitant]
     Active Substance: ALOGLIPTIN BENZOATE
  5. PARAMACET [Concomitant]
     Active Substance: ACETAMINOPHEN\TRAMADOL
  6. TRANSAMIN [Concomitant]
     Active Substance: TRANEXAMIC ACID
  7. APETROL [Concomitant]
  8. ALFACALCIDOL [Concomitant]
     Active Substance: ALFACALCIDOL
  9. LENVATINIB [Suspect]
     Active Substance: LENVATINIB
     Dosage: BLINDED DOSE
     Route: 048
     Dates: start: 20180809, end: 20180915
  10. AMLODIPINE [Concomitant]
     Active Substance: AMLODIPINE BESYLATE
  11. GLUCOPHAGE [Concomitant]
     Active Substance: METFORMIN HYDROCHLORIDE
  12. CALTEO [Concomitant]
  13. SYNTHROID [Concomitant]
     Active Substance: LEVOTHYROXINE SODIUM
  14. DICAMAX [Concomitant]
  15. LOPMIN [Concomitant]

REACTIONS (4)
  - Diarrhoea [Recovered/Resolved]
  - Cholecystitis [Recovered/Resolved]
  - Asthenia [Recovered/Resolved]
  - Colitis [Recovered/Resolved]

NARRATIVE: CASE EVENT DATE: 20180618
